FAERS Safety Report 14099084 (Version 3)
Quarter: 2017Q4

REPORT INFORMATION
  Report Type: Spontaneous
  Country: US (occurrence: US)
  Receive Date: 20171017
  Receipt Date: 20171110
  Transmission Date: 20180321
  Serious: Yes (Death)
  Sender: FDA-Public Use
  Company Number: US-CONCORDIA LABORATORIES INC.-2017-CLI-000001

PATIENT
  Age: 74 Year
  Sex: Male

DRUGS (1)
  1. PHOTOFRIN [Suspect]
     Active Substance: PORFIMER SODIUM
     Indication: LUNG NEOPLASM MALIGNANT
     Dosage: UNK
     Route: 065
     Dates: start: 20170915, end: 20170915

REACTIONS (3)
  - Hypoxia [Fatal]
  - Myocardial infarction [Fatal]
  - Sepsis [Fatal]

NARRATIVE: CASE EVENT DATE: 2017
